FAERS Safety Report 17540358 (Version 2)
Quarter: 2020Q1

REPORT INFORMATION
  Report Type: Spontaneous
  Country: JP (occurrence: JP)
  Receive Date: 20200313
  Receipt Date: 20200330
  Transmission Date: 20200409
  Serious: Yes (Other)
  Sender: FDA-Public Use
  Company Number: JP-AMGEN-JPNNI2020042461

PATIENT

DRUGS (1)
  1. PANITUMUMAB [Suspect]
     Active Substance: PANITUMUMAB
     Indication: COLORECTAL CANCER
     Dosage: 6 MILLIGRAM/KILOGRAM, Q2WEEKS
     Route: 042

REACTIONS (6)
  - Rash [Unknown]
  - Paronychia [Unknown]
  - Fatigue [Unknown]
  - Hypomagnesaemia [Unknown]
  - Neutropenia [Unknown]
  - Hyponatraemia [Unknown]
